FAERS Safety Report 10071104 (Version 5)
Quarter: 2014Q4

REPORT INFORMATION
  Report Type: Spontaneous
  Country: US (occurrence: US)
  Receive Date: 20140410
  Receipt Date: 20141201
  Transmission Date: 20150528
  Serious: Yes (Death, Hospitalization)
  Sender: FDA-Public Use
  Company Number: US-JNJFOC-20140406209

PATIENT
  Sex: Female

DRUGS (2)
  1. XARELTO [Suspect]
     Active Substance: RIVAROXABAN
     Indication: KNEE ARTHROPLASTY
     Dosage: FILM COATED TABLET
     Route: 048
     Dates: start: 20120306, end: 20120313
  2. XARELTO [Suspect]
     Active Substance: RIVAROXABAN
     Indication: THROMBOSIS PROPHYLAXIS
     Dosage: FILM COATED TABLET
     Route: 048
     Dates: start: 20120306, end: 20120313

REACTIONS (5)
  - Brain herniation [Fatal]
  - Thrombocytopenia [Fatal]
  - Intraventricular haemorrhage [Fatal]
  - Hepatitis acute [Not Recovered/Not Resolved]
  - Cerebellar haemorrhage [Fatal]
